FAERS Safety Report 9510198 (Version 1)
Quarter: 2013Q3

REPORT INFORMATION
  Report Type: Spontaneous
  Country: US (occurrence: US)
  Receive Date: 20130909
  Receipt Date: 20130909
  Transmission Date: 20140515
  Serious: No
  Sender: FDA-Public Use
  Company Number: US-BRISTOL-MYERS SQUIBB COMPANY-18733220

PATIENT
  Age: 66 Year
  Sex: Male
  Weight: 117.91 kg

DRUGS (14)
  1. ABILIFY [Suspect]
     Dates: start: 20121206
  2. SUBOXONE [Concomitant]
  3. ZOLOFT [Concomitant]
  4. ENBREL [Concomitant]
  5. METHOTREXATE [Concomitant]
  6. TOPROL [Concomitant]
  7. LAMICTAL [Concomitant]
  8. LIPITOR [Concomitant]
  9. AMBIEN [Concomitant]
  10. LISINOPRIL [Concomitant]
  11. PROSCAR [Concomitant]
  12. FOLIC ACID [Concomitant]
  13. RAPAFLO [Concomitant]
  14. VITAMIN D [Concomitant]

REACTIONS (1)
  - Depressed mood [Unknown]
